FAERS Safety Report 8417659-4 (Version None)
Quarter: 2012Q2

REPORT INFORMATION
  Report Type: 
  Country: None (occurrence: None)
  Receive Date: 20120606
  Receipt Date: 20120531
  Transmission Date: 20120825
  Serious: Yes (Other)
  Sender: FDA-Public Use
  Company Number: CH-BAYER-2012-053704

PATIENT
  Age: 35 Year
  Sex: Female

DRUGS (3)
  1. ASPIRIN [Suspect]
     Dosage: 100 MG, QD
     Route: 064
     Dates: end: 20110519
  2. LANTUS [Suspect]
     Indication: DIABETES MELLITUS
     Dosage: 30 IU, UNK
     Route: 064
     Dates: end: 20110519
  3. JANUMET [Suspect]
     Indication: DIABETES MELLITUS
     Dosage: UNK
     Route: 064
     Dates: end: 20110519

REACTIONS (2)
  - MATERNAL EXPOSURE DURING PREGNANCY [None]
  - ABORTION SPONTANEOUS [None]
